FAERS Safety Report 6635361-6 (Version None)
Quarter: 2010Q1

REPORT INFORMATION
  Report Type: 
  Country: None (occurrence: None)
  Receive Date: 20100311
  Receipt Date: 20100311
  Transmission Date: 20100710
  Serious: Yes (Other)
  Sender: FDA-Public Use
  Company Number: None

PATIENT
  Age: 49 Year
  Sex: Female
  Weight: 58 kg

DRUGS (1)
  1. FLOXURIDINE [Suspect]
     Indication: PANCREATIC CARCINOMA
     Dosage: 1,1360 MG 5 DAYS IV BOLUS
     Route: 040
     Dates: start: 20091123, end: 20091127

REACTIONS (2)
  - CEREBELLAR ATAXIA [None]
  - THROMBOCYTOPENIA [None]
